FAERS Safety Report 7095791-8 (Version None)
Quarter: 2010Q4

REPORT INFORMATION
  Report Type: 
  Country: None (occurrence: None)
  Receive Date: 20101111
  Receipt Date: 20101102
  Transmission Date: 20110411
  Serious: Yes (Hospitalization)
  Sender: FDA-Public Use
  Company Number: ES-ASTRAZENECA-2010SE52257

PATIENT
  Age: 77 Year
  Sex: Male

DRUGS (2)
  1. NEXIUM [Suspect]
     Route: 048
     Dates: start: 20100823
  2. CLAVERSAL [Suspect]
     Indication: COLITIS
     Route: 048
     Dates: start: 20100720

REACTIONS (2)
  - AGRANULOCYTOSIS [None]
  - RESPIRATORY TRACT INFECTION [None]
